FAERS Safety Report 5350672-2 (Version None)
Quarter: 2007Q2

REPORT INFORMATION
  Report Type: 
  Country: None (occurrence: None)
  Receive Date: 20070516
  Receipt Date: 20061205
  Transmission Date: 20071010
  Serious: Yes (Other)
  Sender: FDA-Public Use
  Company Number: 2006150842

PATIENT
  Age: 31 Year
  Sex: Female

DRUGS (2)
  1. DEPO-PROVERA [Suspect]
     Dosage: SEE IMAGE
     Route: 030
     Dates: start: 19940501, end: 19940501
  2. DEPO-PROVERA [Suspect]
     Dosage: SEE IMAGE
     Route: 030
     Dates: start: 20060301, end: 20060301

REACTIONS (1)
  - OSTEOPOROSIS [None]
